FAERS Safety Report 15477356 (Version 1)
Quarter: 2018Q4

REPORT INFORMATION
  Report Type: Spontaneous
  Country: US (occurrence: US)
  Receive Date: 20181009
  Receipt Date: 20181009
  Transmission Date: 20190205
  Serious: No
  Sender: FDA-Public Use
  Company Number: US-B.I. PHARMACEUTICALS,INC./RIDGEFIELD-2018-BI-048510

PATIENT
  Age: 69 Year
  Sex: Male

DRUGS (3)
  1. GILOTRIF [Suspect]
     Active Substance: AFATINIB
     Dosage: FORM STRENGTH: 40 MG; : TABLET? ACTION(S) TAKEN WITH PRODUCT: DRUG REDUCED
     Route: 048
     Dates: start: 20180706, end: 20180829
  2. GILOTRIF [Suspect]
     Active Substance: AFATINIB
     Indication: TRANSITIONAL CELL CARCINOMA
     Dosage: FORM STRENGTH: 20MG; : TABLET? ACTION(S) TAKEN WITH PRODUCT: DRUG WITHDRAWN
     Route: 048
     Dates: start: 20180830, end: 20180907
  3. GILOTRIF [Suspect]
     Active Substance: AFATINIB
     Dosage: FORM STRENGTH: 20MG; : TABLET? ?ACTION(S) TAKEN WITH PRODUCT: DRUG WITHDRAWN
     Route: 048
     Dates: start: 20180919, end: 20180919

REACTIONS (5)
  - Dehydration [Recovered/Resolved]
  - Therapeutic response unexpected [Not Recovered/Not Resolved]
  - Acne [Not Recovered/Not Resolved]
  - Diarrhoea [Recovered/Resolved]
  - Off label use [Unknown]

NARRATIVE: CASE EVENT DATE: 20180706
